FAERS Safety Report 15670350 (Version 1)
Quarter: 2018Q4

REPORT INFORMATION
  Report Type: Spontaneous
  Country: JP (occurrence: JP)
  Receive Date: 20181129
  Receipt Date: 20181129
  Transmission Date: 20190205
  Serious: Yes (Other)
  Sender: FDA-Public Use
  Company Number: JP-PFIZER INC-2018481054

PATIENT
  Age: 71 Year
  Sex: Female

DRUGS (3)
  1. ZALUTIA [Interacting]
     Active Substance: TADALAFIL
     Dosage: 5 MG, UNK
     Route: 048
     Dates: start: 201804
  2. CADUET 2 [Suspect]
     Active Substance: AMLODIPINE\ATORVASTATIN
     Dosage: UNK
     Route: 048
  3. FLIVAS [Interacting]
     Active Substance: NAFTOPIDIL
     Dosage: 75 MG, UNK
     Route: 048
     Dates: start: 20180406

REACTIONS (4)
  - Urinary retention [Unknown]
  - Drug interaction [Unknown]
  - Blood pressure decreased [Unknown]
  - Dizziness [Unknown]

NARRATIVE: CASE EVENT DATE: 20180406
